FAERS Safety Report 20329991 (Version 2)
Quarter: 2022Q1

REPORT INFORMATION
  Report Type: Spontaneous
  Country: US (occurrence: US)
  Receive Date: 20220113
  Receipt Date: 20220117
  Transmission Date: 20220423
  Serious: Yes (Death)
  Sender: FDA-Public Use
  Company Number: US-JNJFOC-20220114063

PATIENT
  Age: 7 Decade
  Sex: Female

DRUGS (1)
  1. ACETAMINOPHEN [Suspect]
     Active Substance: ACETAMINOPHEN
     Indication: Arthritis
     Dosage: PRODUCT USE FREQUENCY: ONCE, PRODUCT DOSE OR QUANTITY: 1
     Route: 048
     Dates: start: 2020

REACTIONS (1)
  - Hepatic failure [Fatal]
